FAERS Safety Report 19680713 (Version 1)
Quarter: 2021Q3

REPORT INFORMATION
  Report Type: Spontaneous
  Country: US (occurrence: US)
  Receive Date: 20210810
  Receipt Date: 20210810
  Transmission Date: 20211014
  Serious: Yes (Life-Threatening, Hospitalization)
  Sender: FDA-Public Use
  Company Number: US-MYLANLABS-2021M1050252

PATIENT
  Age: 71 Year
  Sex: Male

DRUGS (13)
  1. NOREPINEPHRINE. [Suspect]
     Active Substance: NOREPINEPHRINE
     Dosage: 6.5 MICROGRAM, QMINUTE, INFUSION
  2. VASOPRESSIN. [Suspect]
     Active Substance: VASOPRESSIN
     Indication: VASOPLEGIA SYNDROME
     Dosage: MULTIPLE BOLUSES OF VASOPRESSIN WERE GIVEN (8 UNITS TOTAL), BOLUS
  3. PHENYLEPHRINE [Suspect]
     Active Substance: PHENYLEPHRINE HYDROCHLORIDE
     Indication: VASOPLEGIA SYNDROME
     Dosage: HE REQUIRED BOLUSES OF VASOPRESSOR PRIOR TO INITIATION OF CPB, FOR A TOTAL OF 450 MCG PHENYLEPHRINE
  4. NOREPINEPHRINE. [Suspect]
     Active Substance: NOREPINEPHRINE
     Indication: VASOPLEGIA SYNDROME
     Dosage: 4.4 MICROGRAM, QMINUTE, INFUSION
  5. NOREPINEPHRINE. [Suspect]
     Active Substance: NOREPINEPHRINE
     Dosage: 14 MICROGRAM, QMINUTE, INFUSION
  6. VASOPRESSIN. [Suspect]
     Active Substance: VASOPRESSIN
     Dosage: 0.02 INTERNATIONAL UNIT, QMINUTE, BOLUS
  7. NOREPINEPHRINE. [Suspect]
     Active Substance: NOREPINEPHRINE
     Dosage: 6 MICROGRAM, QMINUTE, INFUSION
  8. PROPOFOL. [Concomitant]
     Active Substance: PROPOFOL
     Indication: DRUG THERAPY
     Dosage: 20 MILLIGRAM
     Route: 065
  9. EPINEPHRINE. [Suspect]
     Active Substance: EPINEPHRINE
     Indication: VASOPLEGIA SYNDROME
     Dosage: 1 MILLIGRAM, BOLUS
  10. EPINEPHRINE. [Suspect]
     Active Substance: EPINEPHRINE
     Dosage: 7 MICROGRAM, QMINUTE, INFUSION
  11. EPINEPHRINE. [Suspect]
     Active Substance: EPINEPHRINE
     Dosage: 100 MICROGRAM, INFUSION
  12. EPINEPHRINE. [Suspect]
     Active Substance: EPINEPHRINE
     Dosage: 7.6 MICROGRAM, QMINUTE, INFUSION
  13. CALCIUM CHLORIDE. [Suspect]
     Active Substance: CALCIUM CHLORIDE
     Indication: VASOPLEGIA SYNDROME
     Dosage: UNK
     Route: 065

REACTIONS (1)
  - Drug ineffective [Unknown]
